FAERS Safety Report 5851906-8 (Version None)
Quarter: 2008Q3

REPORT INFORMATION
  Report Type: 
  Country: None (occurrence: None)
  Receive Date: 20080819
  Receipt Date: 20080806
  Transmission Date: 20090109
  Serious: Yes (Hospitalization, Other)
  Sender: FDA-Public Use
  Company Number: TPH-00081

PATIENT
  Age: 32 Year
  Sex: Female

DRUGS (2)
  1. TRIQUILAR [Suspect]
     Indication: CONTRACEPTION
     Dates: start: 20060101, end: 20071108
  2. TRIQUILAR [Suspect]
     Indication: CONTRACEPTION
     Dates: start: 19990101, end: 20040301

REACTIONS (11)
  - ABORTION THREATENED [None]
  - BLOOD DISORDER [None]
  - BLOOD PRESSURE INCREASED [None]
  - DRUG EXPOSURE DURING PREGNANCY [None]
  - DRUG INEFFECTIVE [None]
  - GESTATIONAL DIABETES [None]
  - HEADACHE [None]
  - HIGH RISK PREGNANCY [None]
  - PELVIC PAIN [None]
  - POSTPARTUM DEPRESSION [None]
  - PREGNANCY ON ORAL CONTRACEPTIVE [None]
